FAERS Safety Report 9842054 (Version 3)
Quarter: 2014Q1

REPORT INFORMATION
  Report Type: Report from Study
  Country: AU (occurrence: AU)
  Receive Date: 20140124
  Receipt Date: 20140212
  Transmission Date: 20141002
  Serious: Yes (Death, Other)
  Sender: FDA-Public Use
  Company Number: PHHY2014AU008805

PATIENT
  Age: 87 Year
  Sex: Female

DRUGS (32)
  1. ACLASTA [Suspect]
     Dosage: 5 MG
     Route: 042
     Dates: start: 20101013
  2. ACLASTA [Suspect]
     Dosage: 5 MG
     Route: 042
     Dates: start: 20111027
  3. ACLASTA [Suspect]
     Dosage: 5 MG
     Route: 042
     Dates: start: 20130212
  4. PANADOL OSTEO [Concomitant]
     Dosage: 2 IN THE MORNING
  5. PANADOL OSTEO [Concomitant]
     Dosage: 2 DF, TID
  6. SERETIDE MDI [Concomitant]
     Dosage: 250/25MCG
     Route: 055
  7. VENTOLIN                           /00942701/ [Concomitant]
     Dosage: 100 UG, 2 TO 4 PUFFES EVERY HOUR AS DIRECTED
  8. VENTOLIN                           /00942701/ [Concomitant]
     Dosage: 100 UG, 2 TO 4 HOURS AS DIRCTED VIA SPACER
  9. COUMADIN//COUMARIN [Concomitant]
     Dosage: 1 MG, BEFORE BED AS DIRECTED
  10. COUMADIN//COUMARIN [Concomitant]
     Dosage: 2 MG, 2 IN THE EVENING
  11. LASIX M [Concomitant]
     Dosage: 1 DF, IN THE MORNING
  12. MIRTAZAPINE [Concomitant]
     Dosage: 1 DF,BEFORE BED
  13. NORSPAN//BUPRENORPHINE [Concomitant]
     Dosage: 1 DF, ONCE AWEEK
     Route: 062
  14. LIQUIGEL [Concomitant]
     Dosage: 2 DRP, TID
  15. VAGIFEM [Concomitant]
     Dosage: 1 DF, TWICE A WEEK
  16. INFLUENZA [Concomitant]
     Indication: IMMUNISATION
     Dosage: UNK UKN, UNK
     Dates: start: 20010312
  17. INFLUENZA [Concomitant]
     Dosage: UNK UKN, UNK
     Dates: start: 20020320
  18. INFLUENZA [Concomitant]
     Dosage: UNK UKN, UNK
     Dates: start: 20030401
  19. PNEUMOVAX [Concomitant]
     Indication: IMMUNISATION
     Dosage: UNK UKN, UNK
     Dates: start: 20010716
  20. FLUARIX [Concomitant]
     Indication: IMMUNISATION
     Dosage: UNK UKN, UNK
     Dates: start: 20040413
  21. FLUARIX [Concomitant]
     Dosage: UNK
     Dates: start: 20090318
  22. FLUVAX [Concomitant]
     Indication: IMMUNISATION
     Dosage: UNK UKN, UNK
     Dates: start: 20050314
  23. FLUVAX [Concomitant]
     Dosage: UNK UKN, UNK
     Dates: start: 20091020
  24. FLUVAX [Concomitant]
     Dosage: UNK UKN, UNK
     Dates: start: 20100324
  25. VAXIGRIP [Concomitant]
     Indication: IMMUNISATION
     Dosage: UNK UKN, UNK
     Dates: start: 20060407
  26. VAXIGRIP [Concomitant]
     Dosage: UNK UKN, UNK
     Dates: start: 20070418
  27. VAXIGRIP [Concomitant]
     Dosage: UNK UKN, UNK
     Dates: start: 20080421
  28. VAXIGRIP [Concomitant]
     Dosage: UNK
     Dates: start: 20110330
  29. VAXIGRIP [Concomitant]
     Dosage: UNK
     Dates: start: 20120320
  30. BOOSTRIX [Concomitant]
     Indication: IMMUNISATION
     Dosage: UNK UKN, UNK
     Dates: start: 20081205
  31. BOOSTRIX [Concomitant]
     Indication: IMMUNISATION
  32. PNEUMOVAX 23 [Concomitant]
     Indication: IMMUNISATION
     Dosage: UNK UKN, UNK
     Dates: start: 20090430

REACTIONS (15)
  - Cerebrovascular accident [Fatal]
  - Neurological symptom [Fatal]
  - Balance disorder [Fatal]
  - Gait disturbance [Fatal]
  - Confusional state [Fatal]
  - Hemiparesis [Fatal]
  - Dysphagia [Fatal]
  - Muscular weakness [Fatal]
  - Fall [Unknown]
  - Hypotension [Unknown]
  - Compression fracture [Unknown]
  - Gingival pain [Unknown]
  - Rales [Unknown]
  - Pain [Unknown]
  - Oedema peripheral [Unknown]
